FAERS Safety Report 13704058 (Version 1)
Quarter: 2017Q2

REPORT INFORMATION
  Report Type: Spontaneous
  Country: JP (occurrence: JP)
  Receive Date: 20170629
  Receipt Date: 20170629
  Transmission Date: 20170830
  Serious: Yes (Other)
  Sender: FDA-Public Use
  Company Number: PHHY2017JP081512

PATIENT
  Age: 32 Year
  Sex: Male

DRUGS (5)
  1. PREDNISOLON [Suspect]
     Active Substance: PREDNISOLONE
     Indication: ANAPLASTIC LARGE-CELL LYMPHOMA
     Route: 048
  2. NEORAL [Suspect]
     Active Substance: CYCLOSPORINE
     Indication: ANAPLASTIC LARGE-CELL LYMPHOMA
     Route: 048
  3. METHOTREXATE. [Suspect]
     Active Substance: METHOTREXATE
     Indication: ANAPLASTIC LARGE-CELL LYMPHOMA
     Route: 048
  4. GAMMA GLOBULIN [Suspect]
     Active Substance: IMMUNE GLOBULIN NOS
     Indication: ANAPLASTIC LARGE-CELL LYMPHOMA
     Route: 042
  5. TACROLIMUS. [Suspect]
     Active Substance: TACROLIMUS
     Indication: ANAPLASTIC LARGE-CELL LYMPHOMA
     Route: 048

REACTIONS (4)
  - Malignant neoplasm progression [Unknown]
  - Muscular weakness [Not Recovered/Not Resolved]
  - Anaplastic large-cell lymphoma [Unknown]
  - Product use in unapproved indication [Unknown]
